FAERS Safety Report 5504098-9 (Version None)
Quarter: 2007Q4

REPORT INFORMATION
  Report Type: 
  Country: None (occurrence: None)
  Receive Date: 20071101
  Receipt Date: 20071023
  Transmission Date: 20080405
  Serious: Yes (Death, Hospitalization, Other)
  Sender: FDA-Public Use
  Company Number: US-ELI_LILLY_AND_COMPANY-US200710003316

PATIENT
  Age: 82 Year
  Sex: Female
  Weight: 42.63 kg

DRUGS (1)
  1. FORTEO [Suspect]
     Indication: OSTEOPOROSIS
     Dates: start: 20060301

REACTIONS (4)
  - DEMENTIA ALZHEIMER'S TYPE [None]
  - FALL [None]
  - LUNG INJURY [None]
  - RESPIRATORY FAILURE [None]
